FAERS Safety Report 22222318 (Version 2)
Quarter: 2023Q2

REPORT INFORMATION
  Report Type: Report from Study
  Country: JP (occurrence: JP)
  Receive Date: 20230418
  Receipt Date: 20230630
  Transmission Date: 20230722
  Serious: Yes (Life-Threatening, Other)
  Sender: FDA-Public Use
  Company Number: JP-RECORDATI RARE DISEASE INC.-2023002075

PATIENT
  Age: 0 Year
  Sex: Female
  Weight: 0.603 kg

DRUGS (22)
  1. NEOPROFEN [Suspect]
     Active Substance: IBUPROFEN LYSINE
     Indication: Patent ductus arteriosus
     Dosage: 6 MILLIGRAM, QD
     Route: 042
     Dates: start: 20191007, end: 20191007
  2. NEOPROFEN [Suspect]
     Active Substance: IBUPROFEN LYSINE
     Dosage: 3 MILLIGRAM, QD
     Route: 042
     Dates: start: 20191024, end: 20191024
  3. NEOPROFEN [Suspect]
     Active Substance: IBUPROFEN LYSINE
     Dosage: 3 MILLIGRAM, QD
     Route: 042
     Dates: start: 20191025, end: 20191025
  4. NEOPROFEN [Suspect]
     Active Substance: IBUPROFEN LYSINE
     Dosage: 3 MILLIGRAM, QD
     Route: 042
     Dates: start: 20191026, end: 20191026
  5. NEOPROFEN [Suspect]
     Active Substance: IBUPROFEN LYSINE
     Dosage: 4 MILLIGRAM, QD
     Route: 042
     Dates: start: 20191028, end: 20191028
  6. NEOPROFEN [Suspect]
     Active Substance: IBUPROFEN LYSINE
     Dosage: 4 MILLIGRAM, QD
     Route: 042
     Dates: start: 20191029, end: 20191029
  7. NEOPROFEN [Suspect]
     Active Substance: IBUPROFEN LYSINE
     Dosage: 4 MILLIGRAM, QD
     Route: 042
     Dates: start: 20191030, end: 20191030
  8. DOBUTAMINE [Concomitant]
     Active Substance: DOBUTAMINE HYDROCHLORIDE
     Indication: Hypotension
     Dosage: UNK
     Route: 042
     Dates: start: 20191005, end: 20191005
  9. DOPAMINE HYDROCHLORIDE [Concomitant]
     Active Substance: DOPAMINE HYDROCHLORIDE
     Indication: Hypotension
     Dosage: UNK
     Route: 042
     Dates: start: 20191004, end: 20191013
  10. DOPAMINE HYDROCHLORIDE [Concomitant]
     Active Substance: DOPAMINE HYDROCHLORIDE
     Dosage: UNK
     Route: 042
     Dates: start: 20191020, end: 20191103
  11. MORPHINE [Concomitant]
     Active Substance: MORPHINE
     Indication: Prophylaxis
     Dosage: UNK
     Route: 042
     Dates: start: 20191004, end: 20191025
  12. MORPHINE [Concomitant]
     Active Substance: MORPHINE
     Indication: Pneumothorax
  13. VANCOMYCIN [Concomitant]
     Active Substance: VANCOMYCIN
     Indication: Bacteraemia
     Dosage: UNK
     Route: 042
     Dates: start: 20191006, end: 20191101
  14. PIPERACILLIN SODIUM\TAZOBACTAM SODIUM [Concomitant]
     Active Substance: PIPERACILLIN SODIUM\TAZOBACTAM SODIUM
     Indication: Bacteraemia
     Dosage: UNK
     Route: 042
     Dates: start: 20191006, end: 20191009
  15. PIPERACILLIN SODIUM\TAZOBACTAM SODIUM [Concomitant]
     Active Substance: PIPERACILLIN SODIUM\TAZOBACTAM SODIUM
     Dosage: UNK
     Route: 042
     Dates: start: 20191020, end: 20191030
  16. FUROSEMIDE [Concomitant]
     Active Substance: FUROSEMIDE
     Indication: Oedema
     Dosage: UNK
     Route: 042
     Dates: start: 20191005, end: 20191009
  17. THROMBOMODULIN ALFA [Concomitant]
     Active Substance: THROMBOMODULIN ALFA
     Indication: Disseminated intravascular coagulation
     Dosage: UNK
     Route: 042
     Dates: start: 20191004, end: 20191010
  18. SOLU-CORTEF [Concomitant]
     Active Substance: HYDROCORTISONE SODIUM SUCCINATE
     Indication: Adrenal insufficiency
     Dosage: UNK
     Route: 042
     Dates: start: 20191020, end: 20191024
  19. DEHYDROCHOLIC ACID [Concomitant]
     Active Substance: DEHYDROCHOLIC ACID
     Indication: Jaundice
     Dosage: UNK
     Route: 042
     Dates: start: 20191023, end: 20191031
  20. MIDAZOLAM [Concomitant]
     Active Substance: MIDAZOLAM
     Indication: Sedation
     Dosage: UNK
     Route: 042
     Dates: start: 20191021, end: 20191027
  21. PHENOBARBITAL SODIUM [Concomitant]
     Active Substance: PHENOBARBITAL SODIUM
     Indication: Sedation
     Dosage: UNK
     Route: 042
     Dates: start: 20191021, end: 20191028
  22. FAMOTIDINE [Concomitant]
     Active Substance: FAMOTIDINE
     Indication: Gastric haemorrhage
     Dosage: UNK
     Route: 042
     Dates: start: 20191025, end: 20191028

REACTIONS (5)
  - Hypoalbuminaemia [Recovered/Resolved]
  - Pneumothorax [Recovered/Resolved]
  - Bacteraemia [Recovered/Resolved]
  - Gastric haemorrhage [Recovered/Resolved]
  - Tachycardia [Recovered/Resolved]

NARRATIVE: CASE EVENT DATE: 20191008
